FAERS Safety Report 5941538-5 (Version None)
Quarter: 2008Q4

REPORT INFORMATION
  Report Type: 
  Country: None (occurrence: None)
  Receive Date: 20081104
  Receipt Date: 20081104
  Transmission Date: 20090506
  Serious: Yes (Hospitalization)
  Sender: FDA-Public Use
  Company Number: None

PATIENT
  Sex: Male
  Weight: 40.7 kg

DRUGS (6)
  1. DAUNORUBICIN HCL [Suspect]
     Dosage: 132 MG
     Dates: end: 20081004
  2. METHOTREXATE [Suspect]
     Dosage: 15 MG
     Dates: end: 20081011
  3. PEG-L ASPARAGINASE (K-H) [Suspect]
     Dosage: 3250 IU
     Dates: end: 20081008
  4. PREDNISONE [Suspect]
     Dosage: 22240 MG
     Dates: end: 20081004
  5. VINCRISTINE SULFATE [Suspect]
     Dosage: 8 MG
     Dates: end: 20081004
  6. CYTARABINE [Suspect]
     Dosage: 70 MG
     Dates: end: 20081004

REACTIONS (3)
  - ABDOMINAL ABSCESS [None]
  - APPENDICECTOMY [None]
  - INFLAMMATION [None]
